FAERS Safety Report 7025091-3 (Version None)
Quarter: 2010Q3

REPORT INFORMATION
  Report Type: 
  Country: None (occurrence: None)
  Receive Date: 20100929
  Receipt Date: 20100917
  Transmission Date: 20110219
  Serious: Yes (Life-Threatening, Disabling, Other)
  Sender: FDA-Public Use
  Company Number: GB-GDP-10408994

PATIENT
  Age: 75 Year
  Sex: Female

DRUGS (1)
  1. METVIX (METHYL AMINOLEVULINATE   HYDROCHLORIDE) 16% [Suspect]
     Indication: ACTINIC KERATOSIS
     Dosage: (TOPICAL)
     Route: 061
     Dates: start: 20100623

REACTIONS (1)
  - INFECTION [None]
